FAERS Safety Report 12254414 (Version 1)
Quarter: 2016Q2

REPORT INFORMATION
  Report Type: Report from Study
  Country: US (occurrence: US)
  Receive Date: 20160411
  Receipt Date: 20160411
  Transmission Date: 20160815
  Serious: No
  Sender: FDA-Public Use
  Company Number: ADR-2015-00005

PATIENT
  Age: 40 Year
  Sex: Female

DRUGS (4)
  1. COMPOUNDED BACLOFEN [Suspect]
     Active Substance: BACLOFEN
     Dosage: 31.96 MCG/DAY
     Route: 037
     Dates: end: 20141210
  2. CLONIDINE. [Suspect]
     Active Substance: CLONIDINE
     Dosage: 63.91 MCG/DAY
     Route: 037
     Dates: start: 20140924, end: 20141210
  3. HYDROMORPHONE [Suspect]
     Active Substance: HYDROMORPHONE
     Dosage: 63.91 MCG/DAY
     Route: 037
  4. BUPIVACAINE. [Suspect]
     Active Substance: BUPIVACAINE
     Dosage: 4.794 MG/DAY
     Route: 037

REACTIONS (3)
  - Adverse drug reaction [Recovered/Resolved]
  - Depression [Recovered/Resolved]
  - Lethargy [Recovered/Resolved]

NARRATIVE: CASE EVENT DATE: 20141105
